FAERS Safety Report 8463748-8 (Version None)
Quarter: 2012Q2

REPORT INFORMATION
  Report Type: 
  Country: None (occurrence: None)
  Receive Date: 20120625
  Receipt Date: 20120620
  Transmission Date: 20120825
  Serious: Yes (Hospitalization, Other)
  Sender: FDA-Public Use
  Company Number: PHHY2012CO053427

PATIENT
  Sex: Female

DRUGS (4)
  1. ACETAMINOPHEN W/ CODEINE [Concomitant]
  2. ZOLEDRONOC ACID [Suspect]
     Dosage: UNK
     Route: 042
     Dates: start: 20110323
  3. LUBIPROSTONE [Concomitant]
  4. ASPIRIN [Concomitant]

REACTIONS (2)
  - BRONCHOPNEUMONIA [None]
  - CARDIOVASCULAR DISORDER [None]
